FAERS Safety Report 19069562 (Version 1)
Quarter: 2021Q1

REPORT INFORMATION
  Report Type: Spontaneous
  Country: US (occurrence: US)
  Receive Date: 20210329
  Receipt Date: 20210329
  Transmission Date: 20210420
  Serious: No
  Sender: FDA-Public Use
  Company Number: US-GLAXOSMITHKLINE-USCH2021015738

PATIENT

DRUGS (1)
  1. VOLTAREN ARTHRITIS PAIN [Suspect]
     Active Substance: DICLOFENAC SODIUM
     Indication: ARTHRALGIA

REACTIONS (8)
  - Musculoskeletal stiffness [Unknown]
  - Product use issue [Unknown]
  - Drug ineffective [Unknown]
  - Confusional state [Unknown]
  - Overdose [Unknown]
  - Pain [Unknown]
  - Condition aggravated [Unknown]
  - Dizziness [Unknown]
